FAERS Safety Report 25426776 (Version 4)
Quarter: 2025Q4

REPORT INFORMATION
  Report Type: Report from Study
  Country: US (occurrence: US)
  Receive Date: 20250612
  Receipt Date: 20251229
  Transmission Date: 20260118
  Serious: No
  Sender: DECIPHERA PHARMACEUTICALS
  Company Number: US-DECIPHERA PHARMACEUTICALS LLC-2025US000675

PATIENT
  Age: 22 Year
  Sex: Male

DRUGS (5)
  1. ROMVIMZA [Suspect]
     Active Substance: VIMSELTINIB
     Indication: Connective tissue neoplasm
     Dosage: 30 MILLIGRAM, TWICE WEEKLY
     Route: 061
     Dates: start: 202505, end: 2025
  2. ROMVIMZA [Suspect]
     Active Substance: VIMSELTINIB
     Indication: Soft tissue neoplasm
     Dosage: 30 MILLIGRAM, WEEKLY (1 PILL 30 MG QW-WEEKLY)
     Route: 061
     Dates: start: 2025, end: 2025
  3. ROMVIMZA [Suspect]
     Active Substance: VIMSELTINIB
     Dosage: 30 MILLIGRAM, TWICE WEEKLY
     Route: 061
     Dates: start: 2025, end: 2025
  4. ROMVIMZA [Suspect]
     Active Substance: VIMSELTINIB
     Dosage: 30 MILLIGRAM, TWICE WEEKLY (SATURDAY, TUESDAY)
     Route: 061
     Dates: start: 20250927, end: 2025
  5. ROMVIMZA [Suspect]
     Active Substance: VIMSELTINIB
     Dosage: 30 MILLIGRAM, TWICE WEEKLY (SATURDAY, TUESDAY)
     Route: 061
     Dates: start: 2025

REACTIONS (6)
  - Eye swelling [Unknown]
  - Periorbital swelling [Unknown]
  - Somnolence [Unknown]
  - Arthralgia [Unknown]
  - Inappropriate schedule of product administration [Unknown]
  - Product dose omission issue [Unknown]

NARRATIVE: CASE EVENT DATE: 20250101
